FAERS Safety Report 23216651 (Version 1)
Quarter: 2023Q4

REPORT INFORMATION
  Report Type: Spontaneous
  Country: US (occurrence: US)
  Receive Date: 20231122
  Receipt Date: 20231122
  Transmission Date: 20240110
  Serious: No
  Sender: FDA-Public Use
  Company Number: US-BRISTOL-MYERS SQUIBB COMPANY-2023-168574

PATIENT
  Age: 82 Year
  Sex: Male
  Weight: 73.66 kg

DRUGS (1)
  1. SPRYCEL [Suspect]
     Active Substance: DASATINIB
     Indication: Chronic myelomonocytic leukaemia
     Dates: end: 202311

REACTIONS (1)
  - Chest pain [Unknown]
